FAERS Safety Report 6143113-9 (Version None)
Quarter: 2009Q2

REPORT INFORMATION
  Report Type: 
  Country: None (occurrence: None)
  Receive Date: 20090403
  Receipt Date: 20090327
  Transmission Date: 20091009
  Serious: Yes (Hospitalization)
  Sender: FDA-Public Use
  Company Number: CH-JNJFOC-20090306667

PATIENT
  Age: 32 Year
  Sex: Female

DRUGS (3)
  1. CILEST [Suspect]
     Indication: DRUG USE FOR UNKNOWN INDICATION
     Route: 048
  2. LAMICTAL [Interacting]
     Route: 048
  3. LAMICTAL [Interacting]
     Indication: EPILEPSY
     Route: 048

REACTIONS (2)
  - DRUG INTERACTION [None]
  - TEMPORAL LOBE EPILEPSY [None]
